FAERS Safety Report 7252481-6 (Version None)
Quarter: 2011Q1

REPORT INFORMATION
  Report Type: 
  Country: None (occurrence: None)
  Receive Date: 20110129
  Receipt Date: 20100119
  Transmission Date: 20110831
  Serious: Yes (Hospitalization, Other)
  Sender: FDA-Public Use
  Company Number: US-ABBOTT-10P-163-0620395-00

PATIENT
  Sex: Female
  Weight: 92.162 kg

DRUGS (11)
  1. ASTELIN [Concomitant]
     Indication: NASAL CONGESTION
     Route: 045
  2. LAMODIL [Concomitant]
     Indication: CROHN'S DISEASE
     Route: 048
  3. NEXIUM [Concomitant]
     Indication: GASTROOESOPHAGEAL REFLUX DISEASE
     Route: 048
  4. RITALIN [Concomitant]
     Indication: ATTENTION DEFICIT/HYPERACTIVITY DISORDER
  5. TOPAMAX [Concomitant]
     Indication: MIGRAINE
     Route: 048
  6. PROZAC [Concomitant]
     Indication: DEPRESSION
     Route: 048
  7. LUNESTA [Concomitant]
     Indication: SLEEP APNOEA SYNDROME
     Dosage: AT BEDTIME
     Route: 048
  8. VITAMIN B-12 [Concomitant]
     Indication: ILEOSTOMY
     Route: 030
  9. IMITREX [Concomitant]
     Indication: MIGRAINE
     Route: 048
  10. ADVAIR [Concomitant]
     Indication: ASTHMA
     Dosage: 500/50 MG 2 IN 1 D
  11. HUMIRA [Suspect]
     Indication: CROHN'S DISEASE
     Route: 058
     Dates: start: 20090501

REACTIONS (5)
  - OROPHARYNGEAL PAIN [None]
  - MYOCARDIAL INFARCTION [None]
  - MUSCULOSKELETAL STIFFNESS [None]
  - PERICARDITIS [None]
  - TONSILLITIS [None]
